FAERS Safety Report 8431173-1 (Version None)
Quarter: 2012Q2

REPORT INFORMATION
  Report Type: 
  Country: None (occurrence: None)
  Receive Date: 20120612
  Receipt Date: 20120605
  Transmission Date: 20120825
  Serious: Yes (Hospitalization, Congenital Anomaly)
  Sender: FDA-Public Use
  Company Number: GXKR2012DE001940

PATIENT

DRUGS (3)
  1. METFORMIN HCL [Suspect]
     Dosage: MATERNAL DOSE: 1500 MG DAILY
     Route: 064
  2. LEVOTHYROXINE SODIUM [Concomitant]
     Dosage: MATERNAL DOSE 50 UG, DAILY
     Route: 064
  3. FOLIC ACID [Concomitant]
     Dosage: MATERNAL DOSE 0.4 MG, DAILY
     Route: 064

REACTIONS (4)
  - PATENT DUCTUS ARTERIOSUS [None]
  - PULMONARY HYPOPLASIA [None]
  - CONGENITAL DIAPHRAGMATIC HERNIA [None]
  - FOETAL EXPOSURE DURING PREGNANCY [None]
